FAERS Safety Report 9084949 (Version 2)
Quarter: 2013Q1

REPORT INFORMATION
  Report Type: Spontaneous
  Country: US (occurrence: US)
  Receive Date: 20130130
  Receipt Date: 20130312
  Transmission Date: 20140127
  Serious: No
  Sender: FDA-Public Use
  Company Number: US-009507513-1301USA011918

PATIENT
  Sex: 0

DRUGS (1)
  1. DULERA [Suspect]
     Route: 055

REACTIONS (1)
  - Cardiac disorder [Unknown]
